FAERS Safety Report 5205827-4 (Version None)
Quarter: 2007Q1

REPORT INFORMATION
  Report Type: 
  Country: None (occurrence: None)
  Receive Date: 20070105
  Receipt Date: 20070105
  Transmission Date: 20070707
  Serious: Yes (Hospitalization)
  Sender: FDA-Public Use
  Company Number: None

PATIENT
  Age: 58 Year
  Sex: Male
  Weight: 84.5 kg

DRUGS (4)
  1. WARFARIN SODIUM [Suspect]
     Dosage: 6 MG
  2. METOPROLOL SUCCINATE [Suspect]
     Indication: CORONARY ARTERY DISEASE
     Dosage: 25 MG BID
  3. DILTIA [Suspect]
     Indication: HYPERTENSION
     Dosage: 120MG QD
  4. FUROSEMIDE [Suspect]
     Dosage: 40 MG QD

REACTIONS (20)
  - ADRENAL DISORDER [None]
  - AZOTAEMIA [None]
  - CHROMATURIA [None]
  - DEHYDRATION [None]
  - DIZZINESS [None]
  - HAEMATURIA [None]
  - HAEMORRHAGE [None]
  - HYPOTENSION [None]
  - ILL-DEFINED DISORDER [None]
  - INTERNATIONAL NORMALISED RATIO INCREASED [None]
  - LUNG SQUAMOUS CELL CARCINOMA STAGE UNSPECIFIED [None]
  - NEOPLASM MALIGNANT [None]
  - NORMOCHROMIC NORMOCYTIC ANAEMIA [None]
  - PNEUMONIA [None]
  - PRODUCTIVE COUGH [None]
  - PULMONARY MASS [None]
  - RED BLOOD CELL COUNT DECREASED [None]
  - SEPSIS [None]
  - SPUTUM DISCOLOURED [None]
  - SYNCOPE [None]
